FAERS Safety Report 14080089 (Version 1)
Quarter: 2017Q4

REPORT INFORMATION
  Report Type: Spontaneous
  Country: US (occurrence: US)
  Receive Date: 20171012
  Receipt Date: 20171012
  Transmission Date: 20180321
  Serious: No
  Sender: FDA-Public Use
  Company Number: US-MYLANLABS-2017M1028514

PATIENT
  Age: 44 Year
  Sex: Male

DRUGS (1)
  1. CLONAZEPAM TABLETS, USP [Suspect]
     Active Substance: CLONAZEPAM
     Indication: MUSCLE SPASMS
     Dosage: 1 MG, QD
     Route: 048

REACTIONS (9)
  - Insomnia [Recovering/Resolving]
  - Tremor [Recovering/Resolving]
  - Panic disorder [Recovering/Resolving]
  - Unevaluable event [Recovering/Resolving]
  - Tic [Recovering/Resolving]
  - Heart rate increased [Recovering/Resolving]
  - Palpitations [Recovering/Resolving]
  - Wrong technique in product usage process [Recovered/Resolved]
  - Product quality issue [Recovered/Resolved]

NARRATIVE: CASE EVENT DATE: 201704
